FAERS Safety Report 5263488-2 (Version None)
Quarter: 2007Q1

REPORT INFORMATION
  Report Type: 
  Country: None (occurrence: None)
  Receive Date: 20070313
  Receipt Date: 20070307
  Transmission Date: 20070707
  Serious: Yes (Disabling)
  Sender: FDA-Public Use
  Company Number: JP-AVENTIS-200710039JP

PATIENT
  Age: 50 Year
  Sex: Female
  Weight: 44 kg

DRUGS (12)
  1. TAXOTERE [Suspect]
     Route: 041
     Dates: start: 20060714, end: 20060714
  2. PROTECADIN [Concomitant]
     Route: 048
     Dates: start: 20060421, end: 20060804
  3. ZOFRAN [Concomitant]
     Indication: VOMITING
     Dosage: DOSE: 4 MG 5 DAYS/3 WEEKS
     Route: 048
     Dates: start: 20060421, end: 20060804
  4. DECADRON [Concomitant]
     Indication: VOMITING
     Dosage: DOSE: 8 MG 3 DAYS/3 WEEKS
     Route: 048
     Dates: start: 20060421, end: 20060804
  5. DECADRON [Concomitant]
     Dates: start: 20060421, end: 20060714
  6. DECADRON [Concomitant]
     Indication: PREMEDICATION
     Dosage: DOSE: 8 MG 3 DAYS/3 WEEKS
     Route: 048
     Dates: start: 20060421, end: 20060804
  7. DECADRON [Concomitant]
     Dates: start: 20060421, end: 20060714
  8. LOXONIN                            /00890701/ [Concomitant]
     Indication: MYALGIA
     Dosage: DOSE: 1 TABLET
     Route: 048
     Dates: start: 20060421, end: 20060804
  9. PREDONINE                          /00016201/ [Concomitant]
     Indication: VOMITING
     Route: 042
     Dates: start: 20060421, end: 20060714
  10. SEROTONE [Concomitant]
     Indication: VOMITING
     Dosage: DOSE: 2 AMPULES TWICE/3 WEEKS
     Route: 042
     Dates: start: 20060421, end: 20060714
  11. SOL-MELCORT [Concomitant]
     Route: 042
     Dates: start: 20060421, end: 20060714
  12. RADIOTHERAPY [Concomitant]
     Dosage: DOSE: 50 GY TOTAL
     Dates: start: 20060819, end: 20060921

REACTIONS (1)
  - INTRACRANIAL PRESSURE INCREASED [None]
